FAERS Safety Report 5007235-8 (Version None)
Quarter: 2006Q1

REPORT INFORMATION
  Report Type: 
  Country: None (occurrence: None)
  Receive Date: 20060320
  Receipt Date: 20050302
  Transmission Date: 20060701
  Serious: Yes (Hospitalization)
  Sender: FDA-Public Use
  Company Number: 2005-03-0174

PATIENT
  Age: 56 Year
  Sex: Female
  Weight: 94.3482 kg

DRUGS (7)
  1. PEG-INTRON [Suspect]
     Indication: HEPATITIS C
     Dosage: 150 MCG QW, SUBCUTANEOUS
     Route: 058
     Dates: start: 20040817
  2. REBETOL [Suspect]
     Indication: HEPATITIS C
     Dosage: 1200-1000 QD, ORAL
     Route: 048
     Dates: start: 20040817, end: 20041221
  3. REBETOL [Suspect]
     Indication: HEPATITIS C
     Dosage: 1200-1000 QD, ORAL
     Route: 048
     Dates: start: 20041222
  4. LAMOTRIGINE [Concomitant]
  5. BUPROPION HYDROCHLORIDE [Concomitant]
  6. LORAZEPAM [Concomitant]
  7. LEVOTHYROXINE SODIUM [Concomitant]

REACTIONS (10)
  - ANAEMIA [None]
  - CHILLS [None]
  - COUGH [None]
  - HEADACHE [None]
  - NAUSEA [None]
  - NEUTROPENIA [None]
  - ORAL INTAKE REDUCED [None]
  - PAIN [None]
  - PNEUMONIA [None]
  - PYREXIA [None]
